FAERS Safety Report 10063464 (Version 3)
Quarter: 2014Q2

REPORT INFORMATION
  Report Type: Spontaneous
  Country: CN (occurrence: CN)
  Receive Date: 20140407
  Receipt Date: 20140515
  Transmission Date: 20141212
  Serious: Yes (Other)
  Sender: FDA-Public Use
  Company Number: CN-NAPPMUNDI-GBR-2014-0017372

PATIENT
  Sex: Male

DRUGS (2)
  1. OXYCONTIN TABLETS [Suspect]
     Indication: CANCER PAIN
     Dosage: 40 TO 80 MG
     Route: 065
  2. FENTANYL [Suspect]
     Indication: CANCER PAIN
     Dosage: 5 MG TOTAL (2 PATCHES, AT 2.5 MG EACH)
     Route: 062

REACTIONS (3)
  - Overdose [Recovered/Resolved]
  - Delirium [Recovered/Resolved]
  - Intentional product misuse [Recovered/Resolved]
